FAERS Safety Report 6749899-4 (Version None)
Quarter: 2010Q2

REPORT INFORMATION
  Report Type: 
  Country: None (occurrence: None)
  Receive Date: 20100601
  Receipt Date: 20100527
  Transmission Date: 20101027
  Serious: Yes (Hospitalization)
  Sender: FDA-Public Use
  Company Number: CL-BRISTOL-MYERS SQUIBB COMPANY-15112527

PATIENT
  Age: 50 Year
  Sex: Female
  Weight: 46 kg

DRUGS (2)
  1. CISPLATIN [Suspect]
     Indication: GASTROOESOPHAGEAL CANCER
     Dosage: TAKEN ON DAY 1 OF CYCLE.
     Route: 042
     Dates: start: 20100429
  2. CAPECITABINE [Suspect]
     Indication: GASTROOESOPHAGEAL CANCER
     Dosage: FORM:TABLET;RECENT DOSE: 13MAY10 NO OF DOSAGE: ON DAY 1-15
     Route: 048
     Dates: start: 20100429

REACTIONS (1)
  - DEEP VEIN THROMBOSIS [None]
